FAERS Safety Report 6651224-4 (Version None)
Quarter: 2010Q1

REPORT INFORMATION
  Report Type: 
  Country: None (occurrence: None)
  Receive Date: 20100325
  Receipt Date: 20100316
  Transmission Date: 20100710
  Serious: Yes (Hospitalization)
  Sender: FDA-Public Use
  Company Number: US-AMGEN-KDC388546

PATIENT
  Sex: Female
  Weight: 71.6 kg

DRUGS (20)
  1. CINACALCET HYDROCHLORIDE [Suspect]
     Indication: HYPERPARATHYROIDISM SECONDARY
     Route: 048
     Dates: start: 20100107
  2. EPOETIN ALFA [Concomitant]
  3. ALBUTEROL SULATE [Concomitant]
  4. OXYGEN [Concomitant]
  5. MULTI-VITAMINS [Concomitant]
     Route: 048
  6. MEGACE [Concomitant]
  7. PHOSLO [Concomitant]
  8. LANTUS [Concomitant]
     Route: 058
  9. CARDURA [Concomitant]
  10. NOVOLOG [Concomitant]
     Route: 058
  11. NORVASC [Concomitant]
  12. PLAVIX [Concomitant]
  13. PROTONIX [Concomitant]
  14. HYDRALAZINE HCL [Concomitant]
  15. COREG [Concomitant]
  16. COLACE [Concomitant]
  17. ZESTRIL [Concomitant]
  18. REGLAN [Concomitant]
  19. DOSTINEX [Concomitant]
  20. ZEMPLAR [Concomitant]

REACTIONS (2)
  - PRESYNCOPE [None]
  - SYNCOPE [None]
